FAERS Safety Report 17980556 (Version 1)
Quarter: 2020Q3

REPORT INFORMATION
  Report Type: Spontaneous
  Country: GB (occurrence: GB)
  Receive Date: 20200704
  Receipt Date: 20200704
  Transmission Date: 20201103
  Serious: Yes (Disabling)
  Sender: FDA-Public Use
  Company Number: GB-TEVA-2020-GB-1794254

PATIENT
  Age: 87 Year
  Sex: Female
  Weight: 58 kg

DRUGS (11)
  1. PIVMECILLINAM [Concomitant]
     Active Substance: AMDINOCILLIN PIVOXIL
     Dosage: WOMEN. FOR 3 DAYS. 6  DOSAGE FORMS
     Dates: start: 20200611
  2. ACETYLSALICYLIC ACID [Concomitant]
     Active Substance: ASPIRIN
     Dosage: 1 DOSAGE FORMS DAILY; IN THE MORNING.
     Dates: start: 20200108
  3. ALENDRONIC ACID [Concomitant]
     Active Substance: ALENDRONIC ACID
     Dosage: ON A MONDAY.1 DOSAGE FORMS
     Dates: start: 20200108
  4. CODEINE PHOSPHATE [Concomitant]
     Active Substance: CODEINE PHOSPHATE
     Dosage: 4 DOSAGE FORMS
     Dates: start: 20200408
  5. LINAGLIPTIN [Concomitant]
     Active Substance: LINAGLIPTIN
     Dosage: 1 DOSAGE FORMS
     Dates: start: 20200305
  6. LEVOTHYROXINE. [Concomitant]
     Active Substance: LEVOTHYROXINE
     Dosage: 1 DOSAGE FORMS
     Dates: start: 20200108
  7. PARACETAMOL [Concomitant]
     Active Substance: ACETAMINOPHEN
     Indication: PAIN
     Dosage: ONE TO TWO TABLETS TO BE TAKEN EVERY FOUR TO SIX HOURS.
     Dates: start: 20200408, end: 20200506
  8. LORATADINE. [Concomitant]
     Active Substance: LORATADINE
     Dosage: 1 DOSAGE FORMS DAILY; DAILY
     Dates: start: 20200217
  9. TRIMETHOPRIM. [Suspect]
     Active Substance: TRIMETHOPRIM
     Dosage: 100 MG
     Dates: start: 20200609
  10. DONEPEZIL HYDROCHLORIDE. [Concomitant]
     Active Substance: DONEPEZIL HYDROCHLORIDE
     Dosage: 1 DOSAGE FORM
     Dates: start: 20200108
  11. EVACAL D3 CHEWABLE [Concomitant]
     Dosage: 2 DOSAGE FORMS
     Dates: start: 20200108

REACTIONS (4)
  - Pallor [Recovered/Resolved]
  - Cold sweat [Recovered/Resolved]
  - Blood glucose abnormal [Recovered/Resolved]
  - Nasopharyngitis [Recovered/Resolved]

NARRATIVE: CASE EVENT DATE: 20200611
